FAERS Safety Report 18121818 (Version 1)
Quarter: 2020Q3

REPORT INFORMATION
  Report Type: Spontaneous
  Country: CN (occurrence: CN)
  Receive Date: 20200806
  Receipt Date: 20200806
  Transmission Date: 20201103
  Serious: Yes (Other)
  Sender: FDA-Public Use
  Company Number: CN-009507513-2008CHN001131

PATIENT
  Age: 52 Year
  Sex: Male
  Weight: 67 kg

DRUGS (5)
  1. SODIUM CHLORIDE. [Concomitant]
     Active Substance: SODIUM CHLORIDE
     Dosage: 100 MILLILITER, TID
     Route: 041
  2. LEVOFLOXACIN HYDROCHLORIDE [Suspect]
     Active Substance: LEVOFLOXACIN HYDROCHLORIDE
     Dosage: 0.5 GRAM, QD, 5 TUBES
     Route: 041
     Dates: start: 20200518, end: 20200520
  3. TIENAM [Suspect]
     Active Substance: CILASTATIN SODIUM\IMIPENEM
     Indication: ANTI-INFECTIVE THERAPY
     Dosage: 1 GRAM, BID (ALSO REPORTED AS EVERY 8 HOURS, Q8H)
     Route: 041
     Dates: start: 20200518, end: 20200520
  4. SODIUM CHLORIDE. [Concomitant]
     Active Substance: SODIUM CHLORIDE
     Dosage: 500 MILLILITER, QD
     Route: 041
  5. PERAMIVIR [Suspect]
     Active Substance: PERAMIVIR
     Indication: ANTIVIRAL TREATMENT
     Dosage: 2 BOTTLES (VIALS), QD
     Route: 041
     Dates: start: 20200518, end: 20200520

REACTIONS (6)
  - Cerebral small vessel ischaemic disease [Unknown]
  - Psychotic symptom [Recovered/Resolved]
  - Treatment noncompliance [Recovered/Resolved]
  - Heart rate irregular [Recovered/Resolved]
  - Hallucination [Recovered/Resolved]
  - Aggression [Recovered/Resolved]

NARRATIVE: CASE EVENT DATE: 202005
